FAERS Safety Report 7158720-4 (Version None)
Quarter: 2010Q4

REPORT INFORMATION
  Report Type: 
  Country: None (occurrence: None)
  Receive Date: 20101214
  Receipt Date: 20101207
  Transmission Date: 20110411
  Serious: Yes (Other)
  Sender: FDA-Public Use
  Company Number: US-US-EMD SERONO, INC.-7014155

PATIENT
  Sex: Female

DRUGS (3)
  1. REBIF [Suspect]
     Indication: PRODUCT USED FOR UNKNOWN INDICATION
     Route: 058
     Dates: start: 20100607, end: 20100901
  2. LITHIUM [Concomitant]
     Dates: start: 20100501
  3. UNSPECIFIED ANTIDEPRESSANT MEDICATIONS [Concomitant]

REACTIONS (12)
  - ARTHRALGIA [None]
  - CHILLS [None]
  - CONVULSION [None]
  - DEPRESSED MOOD [None]
  - EYE PAIN [None]
  - INJECTION SITE ERYTHEMA [None]
  - INJECTION SITE HAEMORRHAGE [None]
  - INJECTION SITE PAIN [None]
  - MUSCLE SPASTICITY [None]
  - NIGHT SWEATS [None]
  - PAIN [None]
  - TREMOR [None]
